FAERS Safety Report 24067436 (Version 7)
Quarter: 2025Q1

REPORT INFORMATION
  Report Type: Report from Study
  Country: ES (occurrence: ES)
  Receive Date: 20240709
  Receipt Date: 20250227
  Transmission Date: 20250409
  Serious: Yes (Other)
  Sender: ABBVIE
  Company Number: ES-ABBVIE-5720896

PATIENT
  Age: 75 Year
  Sex: Female

DRUGS (2)
  1. CARBIDOPA\LEVODOPA [Suspect]
     Active Substance: CARBIDOPA\LEVODOPA
     Indication: Parkinson^s disease
     Route: 050
     Dates: start: 20221124
  2. CARBIDOPA\LEVODOPA [Suspect]
     Active Substance: CARBIDOPA\LEVODOPA

REACTIONS (8)
  - Haematuria [Recovered/Resolved]
  - Skin haemorrhage [Recovered/Resolved]
  - Stoma site haemorrhage [Unknown]
  - Therapeutic product effect incomplete [Not Recovered/Not Resolved]
  - Stoma site hypergranulation [Recovered/Resolved]
  - On and off phenomenon [Unknown]
  - Freezing phenomenon [Unknown]
  - Granuloma [Recovered/Resolved]

NARRATIVE: CASE EVENT DATE: 20240101
